FAERS Safety Report 9413632 (Version 1)
Quarter: 2013Q3

REPORT INFORMATION
  Report Type: Spontaneous
  Country: IT (occurrence: IT)
  Receive Date: 20130722
  Receipt Date: 20130722
  Transmission Date: 20140515
  Serious: No
  Sender: FDA-Public Use
  Company Number: IT-009507513-1307ITA008178

PATIENT
  Age: 71 Year
  Sex: Female

DRUGS (2)
  1. SYCREST [Suspect]
     Indication: AFFECTIVE DISORDER
     Dosage: 5 MG, QD
     Route: 060
     Dates: start: 20120713, end: 20121025
  2. DROPAXIN [Concomitant]
     Indication: ANTIDEPRESSANT THERAPY
     Dosage: 30 MG, QD
     Route: 048
     Dates: start: 20120713

REACTIONS (4)
  - Vertigo [Recovered/Resolved]
  - Off label use [Unknown]
  - Hypotension [Recovered/Resolved]
  - Dizziness [Recovered/Resolved]
